FAERS Safety Report 13134734 (Version 1)
Quarter: 2017Q1

REPORT INFORMATION
  Report Type: Spontaneous
  Country: FR (occurrence: FR)
  Receive Date: 20170120
  Receipt Date: 20170120
  Transmission Date: 20170428
  Serious: Yes (Other)
  Sender: FDA-Public Use
  Company Number: FR-PFIZER INC-2017025464

PATIENT
  Age: 37 Year
  Sex: Female

DRUGS (2)
  1. IDARUBICIN [Concomitant]
     Active Substance: IDARUBICIN
     Indication: ACUTE MYELOID LEUKAEMIA
     Dosage: 13 MG, DAILY (9 MG/M2, FROM D1 TO D5)
     Dates: start: 20160126, end: 20160130
  2. CYTARABINE. [Suspect]
     Active Substance: CYTARABINE
     Indication: ACUTE MYELOID LEUKAEMIA
     Dosage: 300 MG, DAILY (200 MG/M2, FROM D1 TO D7)^
     Dates: start: 20160126, end: 20160201

REACTIONS (2)
  - Colitis [Unknown]
  - Toxic skin eruption [Recovered/Resolved]

NARRATIVE: CASE EVENT DATE: 2016
